FAERS Safety Report 6539903-0 (Version None)
Quarter: 2010Q1

REPORT INFORMATION
  Report Type: 
  Country: None (occurrence: None)
  Receive Date: 20100115
  Receipt Date: 20100112
  Transmission Date: 20100710
  Serious: Yes (Disabling, Congenital Anomaly)
  Sender: FDA-Public Use
  Company Number: JP-EISAI INC.-E2090-00948-SPO-JP

PATIENT
  Sex: Male

DRUGS (2)
  1. EXCEGRAN [Suspect]
     Indication: DRUG EXPOSURE DURING PREGNANCY
     Route: 064
     Dates: start: 20080104, end: 20091216
  2. DEPAKENE [Concomitant]
     Indication: EPILEPSY
     Dates: start: 20080104

REACTIONS (2)
  - CONGENITAL HAND MALFORMATION [None]
  - DRUG EXPOSURE DURING PREGNANCY [None]
